FAERS Safety Report 9675086 (Version 2)
Quarter: 2014Q4

REPORT INFORMATION
  Report Type: Report from Study
  Country: US (occurrence: US)
  Receive Date: 20131107
  Receipt Date: 20141212
  Transmission Date: 20150529
  Serious: Yes (Hospitalization)
  Sender: FDA-Public Use
  Company Number: US-JNJFOC-20131019143

PATIENT
  Age: 76 Year
  Sex: Female
  Weight: 69.4 kg

DRUGS (4)
  1. REMICADE [Suspect]
     Active Substance: INFLIXIMAB
     Indication: RHEUMATOID ARTHRITIS
     Dosage: START DATE: 2 OR 3 YEARS AGO, 3 VIALS
     Route: 042
     Dates: end: 2013
  2. REMICADE [Suspect]
     Active Substance: INFLIXIMAB
     Indication: RHEUMATOID ARTHRITIS
     Dosage: 4 VIALS
     Route: 042
     Dates: start: 2013
  3. METHOTREXATE [Suspect]
     Active Substance: METHOTREXATE
     Indication: RHEUMATOID ARTHRITIS
     Route: 048
  4. METOPROLOL [Concomitant]
     Active Substance: METOPROLOL
     Indication: HYPERTENSION
     Route: 048
     Dates: start: 20131030

REACTIONS (8)
  - Pancreatitis relapsing [Unknown]
  - Pneumonia [Recovered/Resolved]
  - Pancreatic cyst [Unknown]
  - Abnormal loss of weight [Not Recovered/Not Resolved]
  - Eating disorder [Recovered/Resolved]
  - Drug ineffective [Unknown]
  - Swelling [Recovered/Resolved]
  - Arthralgia [Recovered/Resolved]

NARRATIVE: CASE EVENT DATE: 2013
